FAERS Safety Report 15154655 (Version 1)
Quarter: 2018Q3

REPORT INFORMATION
  Report Type: Spontaneous
  Country: US (occurrence: US)
  Receive Date: 20180717
  Receipt Date: 20180717
  Transmission Date: 20181010
  Serious: Yes (Life-Threatening, Hospitalization)
  Sender: FDA-Public Use
  Company Number: US-NOVAST LABORATORIES, LTD-US-2018NOV000264

PATIENT
  Age: 34 Year
  Sex: Male
  Weight: 60 kg

DRUGS (1)
  1. BUTALBITAL, ACETAMINOPHEN, AND CAFFEINE [Suspect]
     Active Substance: ACETAMINOPHEN\BUTALBITAL\CAFFEINE
     Indication: PRODUCT USED FOR UNKNOWN INDICATION
     Dosage: 25 G, UNK
     Route: 048

REACTIONS (5)
  - Acute hepatic failure [Recovered/Resolved]
  - Overdose [Unknown]
  - Encephalopathy [Recovering/Resolving]
  - Coagulopathy [Recovering/Resolving]
  - Hypophosphataemia [Recovered/Resolved]
